FAERS Safety Report 9603822 (Version 3)
Quarter: 2014Q2

REPORT INFORMATION
  Report Type: Report from Study
  Country: BR (occurrence: BR)
  Receive Date: 20131008
  Receipt Date: 20140405
  Transmission Date: 20141212
  Serious: Yes (Hospitalization)
  Sender: FDA-Public Use
  Company Number: BR-ROCHE-1284919

PATIENT
  Sex: Male
  Weight: 80 kg

DRUGS (1)
  1. MABTHERA [Suspect]
     Indication: RHEUMATOID ARTHRITIS
     Dosage: MOST RECENT DOSE RECEIVED ON 06/SEP/2013
     Route: 065
     Dates: start: 20130824

REACTIONS (2)
  - Cyanosis [Recovered/Resolved]
  - Diabetes mellitus [Unknown]
